FAERS Safety Report 25035910 (Version 1)
Quarter: 2025Q1

REPORT INFORMATION
  Report Type: Spontaneous
  Country: US (occurrence: US)
  Receive Date: 20250304
  Receipt Date: 20250304
  Transmission Date: 20250408
  Serious: No
  Sender: INVENTIA HEALTHCARE PRIVATE LIMITED
  Company Number: US-Inventia-000724

PATIENT
  Age: 73 Year
  Sex: Female

DRUGS (1)
  1. METFORMIN HYDROCHLORIDE [Suspect]
     Active Substance: METFORMIN HYDROCHLORIDE
     Indication: Type 2 diabetes mellitus
     Dosage: STRENGTH: 500 MG?FREQUENCY: 4 TABLETS?STARTED 2 YEARS AGO?EXTENDED-RELEASE TABLETS
     Route: 048

REACTIONS (1)
  - Nail deformation [Not Recovered/Not Resolved]
